FAERS Safety Report 4679042-7 (Version None)
Quarter: 2005Q2

REPORT INFORMATION
  Report Type: 
  Country: None (occurrence: None)
  Receive Date: 20050527
  Receipt Date: 20050516
  Transmission Date: 20051028
  Serious: Yes (Death, Other)
  Sender: FDA-Public Use
  Company Number: 2004071970

PATIENT
  Age: 39 Year
  Sex: Female
  Weight: 90.7194 kg

DRUGS (9)
  1. NEURONTIN [Suspect]
     Indication: DYSKINESIA
     Dosage: 1800 MG (600 MG, 3 IN 1 D), ORAL
     Route: 048
     Dates: start: 20020114
  2. NEURONTIN [Suspect]
     Indication: FIBROMYALGIA
     Dosage: 1800 MG (600 MG, 3 IN 1 D), ORAL
     Route: 048
     Dates: start: 20020114
  3. NEURONTIN [Suspect]
     Indication: MIGRAINE
     Dosage: 1800 MG (600 MG, 3 IN 1 D), ORAL
     Route: 048
     Dates: start: 20020114
  4. NORTRIPTYLINE HCL [Concomitant]
  5. NEXIUM [Concomitant]
  6. ALLEGRA [Concomitant]
  7. AMITRIPTYLINE HCL [Concomitant]
  8. MULTIVITAMINS W/MINERALS (MINERALS NOS, VITAMINS NOS) [Concomitant]
  9. VITAMIN C (VITAMIN C) [Concomitant]

REACTIONS (21)
  - ANXIETY [None]
  - ATHEROSCLEROSIS [None]
  - BRAIN DEATH [None]
  - BRAIN HERNIATION [None]
  - BRAIN OEDEMA [None]
  - COMPLETED SUICIDE [None]
  - DRUG INEFFECTIVE [None]
  - FACIAL BONES FRACTURE [None]
  - FEAR [None]
  - GUN SHOT WOUND [None]
  - INJURY [None]
  - INTRAVENTRICULAR HAEMORRHAGE [None]
  - PAIN [None]
  - PNEUMOCEPHALUS [None]
  - SINUS BRADYCARDIA [None]
  - SINUS DISORDER [None]
  - SKULL FRACTURED BASE [None]
  - SUBARACHNOID HAEMORRHAGE [None]
  - SUBDURAL HAEMORRHAGE [None]
  - SUICIDAL IDEATION [None]
  - TRAUMATIC BRAIN INJURY [None]
